FAERS Safety Report 23741180 (Version 2)
Quarter: 2024Q3

REPORT INFORMATION
  Report Type: Spontaneous
  Country: MX (occurrence: MX)
  Receive Date: 20240415
  Receipt Date: 20240909
  Transmission Date: 20241016
  Serious: No
  Sender: BECTON DICKINSON
  Company Number: MX-BECTON DICKINSON-MX-BD-24-000197

PATIENT

DRUGS (1)
  1. CHLORAPREP [Suspect]
     Active Substance: CHLORHEXIDINE GLUCONATE\ISOPROPYL ALCOHOL
     Indication: Product used for unknown indication
     Dosage: N/A
     Route: 065

REACTIONS (1)
  - Product contamination physical [Unknown]

NARRATIVE: CASE EVENT DATE: 20240323
